FAERS Safety Report 4920207-4 (Version None)
Quarter: 2006Q1

REPORT INFORMATION
  Report Type: 
  Country: None (occurrence: None)
  Receive Date: 20060223
  Receipt Date: 20060215
  Transmission Date: 20060701
  Serious: Yes (Other)
  Sender: FDA-Public Use
  Company Number: 2006UW02617

PATIENT
  Age: 32 Year
  Sex: Female

DRUGS (1)
  1. IRESSA [Suspect]
     Indication: RENAL DISORDER
     Route: 048
     Dates: start: 20051101, end: 20060201

REACTIONS (3)
  - ABDOMINAL PAIN UPPER [None]
  - VOMITING [None]
  - WHITE BLOOD CELL COUNT INCREASED [None]
